FAERS Safety Report 9650732 (Version 2)
Quarter: 2013Q4

REPORT INFORMATION
  Report Type: Spontaneous
  Country: DK (occurrence: DK)
  Receive Date: 20131029
  Receipt Date: 20131226
  Transmission Date: 20140711
  Serious: Yes (Hospitalization)
  Sender: FDA-Public Use
  Company Number: DK-ASTRAZENECA-2013SE78079

PATIENT
  Age: 20866 Day
  Sex: Female
  Weight: 29.5 kg

DRUGS (1)
  1. NEXIUM [Suspect]
     Indication: GASTROOESOPHAGEAL SPHINCTER INSUFFICIENCY
     Route: 048

REACTIONS (1)
  - Atrial fibrillation [Unknown]
